FAERS Safety Report 25227703 (Version 2)
Quarter: 2025Q3

REPORT INFORMATION
  Report Type: Report from Study
  Country: EU (occurrence: EU)
  Receive Date: 20250423
  Receipt Date: 20250809
  Transmission Date: 20251020
  Serious: Yes (Other)
  Sender: ALEXION PHARMACEUTICALS
  Company Number: EU-ASTRAZENECA-202504EEA016192IE

PATIENT
  Age: 37 Year
  Sex: Female

DRUGS (7)
  1. BENRALIZUMAB [Suspect]
     Active Substance: BENRALIZUMAB
     Indication: Asthma
     Dosage: 30 MILLIGRAM, Q8W
     Dates: start: 20250220
  2. BENRALIZUMAB [Suspect]
     Active Substance: BENRALIZUMAB
     Dosage: 30 MILLIGRAM, Q8W
     Route: 050
     Dates: start: 20250417
  3. PREDNISONE [Concomitant]
     Active Substance: PREDNISONE
     Route: 050
  4. SYMBICORT [Concomitant]
     Active Substance: BUDESONIDE\FORMOTEROL FUMARATE DIHYDRATE
     Route: 050
  5. SINGULAIR [Concomitant]
     Active Substance: MONTELUKAST SODIUM
     Route: 050
  6. ALVESCO [Concomitant]
     Active Substance: CICLESONIDE
     Route: 050
  7. RYALTRIS [Concomitant]
     Active Substance: MOMETASONE FUROATE MONOHYDRATE\OLOPATADINE HYDROCHLORIDE
     Route: 050

REACTIONS (4)
  - Asthma [Unknown]
  - Lower respiratory tract infection [Unknown]
  - Haemoptysis [Unknown]
  - Nodule [Unknown]

NARRATIVE: CASE EVENT DATE: 20250330
